FAERS Safety Report 26001309 (Version 1)
Quarter: 2025Q4

REPORT INFORMATION
  Report Type: Spontaneous
  Country: US (occurrence: US)
  Receive Date: 20251105
  Receipt Date: 20251105
  Transmission Date: 20260118
  Serious: No
  Sender: BLUEPRINT MEDICINES
  Company Number: US-Blueprint Medicines Corporation-2025-AER-02412

PATIENT
  Age: 38 Year
  Sex: Female

DRUGS (2)
  1. AYVAKIT [Suspect]
     Active Substance: AVAPRITINIB
     Indication: Systemic mastocytosis
     Route: 065
  2. AYVAKIT [Suspect]
     Active Substance: AVAPRITINIB
     Route: 065

REACTIONS (6)
  - Respiratory tract infection [Unknown]
  - Abdominal pain upper [Unknown]
  - Abdominal distension [Unknown]
  - Constipation [Unknown]
  - Dyspepsia [Unknown]
  - Headache [Unknown]

NARRATIVE: CASE EVENT DATE: 20251031
